FAERS Safety Report 25836933 (Version 2)
Quarter: 2025Q3

REPORT INFORMATION
  Report Type: Report from Study
  Country: BR (occurrence: BR)
  Receive Date: 20250923
  Receipt Date: 20250925
  Transmission Date: 20251020
  Serious: Yes (Other)
  Sender: ABBVIE
  Company Number: BR-ABBVIE-6468695

PATIENT
  Sex: Female

DRUGS (1)
  1. RINVOQ [Suspect]
     Active Substance: UPADACITINIB
     Indication: Rheumatoid arthritis
     Route: 048
     Dates: end: 202507

REACTIONS (4)
  - Neoplasm malignant [Recovering/Resolving]
  - Auditory disorder [Unknown]
  - Immunodeficiency [Unknown]
  - Pneumonia [Unknown]

NARRATIVE: CASE EVENT DATE: 20250701
